FAERS Safety Report 7865653-4 (Version None)
Quarter: 2011Q4

REPORT INFORMATION
  Report Type: 
  Country: None (occurrence: None)
  Receive Date: 20111028
  Receipt Date: 20110131
  Transmission Date: 20120403
  Serious: No
  Sender: FDA-Public Use
  Company Number: US-GLAXOSMITHKLINE-A0910704A

PATIENT
  Age: 77 Year
  Sex: Female

DRUGS (4)
  1. ADVAIR DISKUS 100/50 [Suspect]
     Indication: DYSPNOEA
     Dosage: 1PUFF TWICE PER DAY
     Route: 055
     Dates: start: 20110117, end: 20110127
  2. TYLENOL-500 [Concomitant]
  3. VENTOLIN [Concomitant]
  4. GABAPENTIN [Concomitant]

REACTIONS (8)
  - DYSPNOEA [None]
  - ABDOMINAL DISCOMFORT [None]
  - ASTHENIA [None]
  - LETHARGY [None]
  - SLUGGISHNESS [None]
  - DRUG INTOLERANCE [None]
  - FEELING ABNORMAL [None]
  - DRUG INEFFECTIVE [None]
